FAERS Safety Report 6088135-1 (Version None)
Quarter: 2009Q1

REPORT INFORMATION
  Report Type: 
  Country: None (occurrence: None)
  Receive Date: 20090224
  Receipt Date: 20090218
  Transmission Date: 20090719
  Serious: Yes (Hospitalization)
  Sender: FDA-Public Use
  Company Number: JP-SP-2008-03195

PATIENT
  Age: 86 Year
  Sex: Male

DRUGS (2)
  1. IMMUCYST [Suspect]
     Indication: CARCINOMA IN SITU OF BLADDER
     Route: 043
     Dates: start: 20080804, end: 20080901
  2. IMMUCYST [Suspect]
     Route: 043
     Dates: start: 20080804, end: 20080901

REACTIONS (3)
  - DYSURIA [None]
  - INTERSTITIAL LUNG DISEASE [None]
  - POLLAKIURIA [None]
